FAERS Safety Report 24177863 (Version 1)
Quarter: 2024Q3

REPORT INFORMATION
  Report Type: Spontaneous
  Country: US (occurrence: None)
  Receive Date: 20240805
  Receipt Date: 20240805
  Transmission Date: 20241017
  Serious: No
  Sender: Public
  Company Number: None

PATIENT

DRUGS (3)
  1. CEFEPIME [Suspect]
     Active Substance: CEFEPIME HYDROCHLORIDE
     Dosage: OTHER ROUTE : INTRAVENOUS INFUSION ;?
     Route: 050
  2. CEFTRIAXONE SODIUM [Suspect]
     Active Substance: CEFTRIAXONE SODIUM
     Dosage: INTRAVENOUSW  OF INTRAMUSCULAR
  3. CEFTRIAXONE SODIUM [Suspect]
     Active Substance: CEFTRIAXONE SODIUM

REACTIONS (4)
  - Product name confusion [None]
  - Product label on wrong product [None]
  - Product packaging confusion [None]
  - Intercepted product administration error [None]
